FAERS Safety Report 7031601-2 (Version None)
Quarter: 2010Q4

REPORT INFORMATION
  Report Type: 
  Country: None (occurrence: None)
  Receive Date: 20101006
  Receipt Date: 20101006
  Transmission Date: 20110411
  Serious: No
  Sender: FDA-Public Use
  Company Number: None

PATIENT
  Sex: Female

DRUGS (1)
  1. FLUORITAB LIQ DROPS 1 OZ; 0.125MG [Suspect]
     Dosage: GIVE 1 DROPPER AT BEDTIME/ORAL ROUTE 2 TO 3 WEEKS
     Route: 048

REACTIONS (3)
  - DRUG DISPENSING ERROR [None]
  - MEDICATION ERROR [None]
  - PRODUCT DROPPER ISSUE [None]
